FAERS Safety Report 25516076 (Version 2)
Quarter: 2025Q4

REPORT INFORMATION
  Report Type: Spontaneous
  Country: US (occurrence: US)
  Receive Date: 20250704
  Receipt Date: 20251224
  Transmission Date: 20260117
  Serious: No
  Sender: NOVO NORDISK
  Company Number: US-NOVOPROD-1471340

PATIENT
  Sex: Female
  Weight: 99.32 kg

DRUGS (1)
  1. WEGOVY [Suspect]
     Active Substance: SEMAGLUTIDE
     Indication: Product used for unknown indication
     Dosage: UNK
     Dates: start: 2024

REACTIONS (2)
  - Depression [Unknown]
  - Weight abnormal [Unknown]
